FAERS Safety Report 6589551-1 (Version None)
Quarter: 2010Q1

REPORT INFORMATION
  Report Type: 
  Country: None (occurrence: None)
  Receive Date: 20100212
  Receipt Date: 20100202
  Transmission Date: 20100710
  Serious: Yes (Hospitalization)
  Sender: FDA-Public Use
  Company Number: A-CH2010-33708

PATIENT
  Age: 5 Year
  Sex: Female

DRUGS (2)
  1. ZAVESCA [Suspect]
     Indication: NIEMANN-PICK DISEASE
  2. PHENOBARBITAL TAB [Concomitant]

REACTIONS (1)
  - ESCHERICHIA URINARY TRACT INFECTION [None]
